FAERS Safety Report 18627690 (Version 1)
Quarter: 2020Q4

REPORT INFORMATION
  Report Type: Spontaneous
  Country: US (occurrence: US)
  Receive Date: 20201216
  Receipt Date: 20201216
  Transmission Date: 20210114
  Serious: Yes (Other)
  Sender: FDA-Public Use
  Company Number: None

PATIENT
  Age: 71 Year
  Sex: Male
  Weight: 94.14 kg

DRUGS (13)
  1. CAPECITABINE. [Suspect]
     Active Substance: CAPECITABINE
     Indication: RECTAL CANCER
     Route: 048
     Dates: start: 20200504
  2. COREG [Concomitant]
     Active Substance: CARVEDILOL
  3. TRICOR [Concomitant]
     Active Substance: FENOFIBRATE
  4. VITAMIN B COMPLEX [Concomitant]
     Active Substance: CYANOCOBALAMIN\DEXPANTHENOL\NIACINAMIDE\PYRIDOXINE HYDROCHLORIDE\RIBOFLAVIN 5^-PHOSPHATE SODIUM\THIAMINE HYDROCHLORIDE\VITAMIN B COMPLEX
  5. PROCHLORPERAZINE. [Concomitant]
     Active Substance: PROCHLORPERAZINE
  6. CITRUCEL [Concomitant]
     Active Substance: METHYLCELLULOSE (4000 MPA.S)
  7. IMODIUM AD [Concomitant]
     Active Substance: LOPERAMIDE HYDROCHLORIDE
  8. APAP ES [Concomitant]
  9. METHYLCELLULOSE [Concomitant]
     Active Substance: METHYLCELLULOSES
  10. OMEPRAZOLE. [Concomitant]
     Active Substance: OMEPRAZOLE
  11. WARFARIN [Concomitant]
     Active Substance: WARFARIN
  12. NEURONTIN [Concomitant]
     Active Substance: GABAPENTIN
  13. MINERAL OIL. [Concomitant]
     Active Substance: MINERAL OIL

REACTIONS (5)
  - Neuropathy peripheral [None]
  - Lip erythema [None]
  - Erythema [None]
  - Genital erythema [None]
  - Diarrhoea [None]

NARRATIVE: CASE EVENT DATE: 20201216
